FAERS Safety Report 6789764-X (Version None)
Quarter: 2010Q2

REPORT INFORMATION
  Report Type: 
  Country: None (occurrence: None)
  Receive Date: 20100624
  Receipt Date: 20100618
  Transmission Date: 20101027
  Serious: Yes (Hospitalization, Other)
  Sender: FDA-Public Use
  Company Number: BR-PFIZER INC-2010063331

PATIENT
  Age: 29 Year
  Sex: Female
  Weight: 52 kg

DRUGS (2)
  1. DEPO-PROVERA [Suspect]
     Indication: OFF LABEL USE
     Dosage: 150 MG, EVERY 3 MONTHS
     Route: 030
     Dates: start: 20100512
  2. DEPO-PROVERA [Suspect]
     Indication: ENDOMETRIAL HYPERPLASIA

REACTIONS (6)
  - APPLICATION SITE HAEMATOMA [None]
  - APPLICATION SITE PAIN [None]
  - ARTHRALGIA [None]
  - CHILLS [None]
  - PELVIC PAIN [None]
  - UTERINE HAEMORRHAGE [None]
